FAERS Safety Report 7204831-4 (Version None)
Quarter: 2010Q4

REPORT INFORMATION
  Report Type: 
  Country: None (occurrence: None)
  Receive Date: 20101230
  Receipt Date: 20101217
  Transmission Date: 20110411
  Serious: Yes (Hospitalization)
  Sender: FDA-Public Use
  Company Number: IT-TEVA-261249ISR

PATIENT
  Sex: Male

DRUGS (1)
  1. GEMCITABINE [Suspect]
     Indication: URINARY TRACT NEOPLASM
     Route: 042
     Dates: start: 20100708, end: 20101028

REACTIONS (1)
  - CIRCULATORY COLLAPSE [None]
